FAERS Safety Report 6558567-3 (Version None)
Quarter: 2010Q1

REPORT INFORMATION
  Report Type: 
  Country: None (occurrence: None)
  Receive Date: 20100129
  Receipt Date: 20090622
  Transmission Date: 20100710
  Serious: Yes (Hospitalization, Disabling, Other)
  Sender: FDA-Public Use
  Company Number: A0793100A

PATIENT
  Age: 62 Year
  Sex: Female

DRUGS (11)
  1. MEPRON [Suspect]
     Dosage: 750MG TWICE PER DAY
     Route: 048
     Dates: start: 20090613, end: 20090617
  2. FRAGMIN [Concomitant]
  3. LEVOFLOXACIN [Concomitant]
     Indication: PNEUMONIA
  4. OMEPRAZOLE [Concomitant]
     Indication: PROPHYLAXIS
  5. PREDNISONE [Concomitant]
     Indication: RHEUMATOID ARTHRITIS
  6. ZOLOFT [Concomitant]
     Indication: DEPRESSION
  7. VANCOMYCIN [Concomitant]
     Route: 048
  8. LINEZOLID [Concomitant]
     Route: 042
  9. ANTIBIOTICS [Concomitant]
  10. METHYLPREDNISOLONE [Concomitant]
  11. SOLU-MEDROL [Concomitant]
     Dosage: 125MG FOUR TIMES PER DAY

REACTIONS (1)
  - HYPONATRAEMIA [None]
